FAERS Safety Report 4695571-4 (Version None)
Quarter: 2005Q2

REPORT INFORMATION
  Report Type: 
  Country: None (occurrence: None)
  Receive Date: 20050523
  Receipt Date: 20050516
  Transmission Date: 20051028
  Serious: Yes (Disabling)
  Sender: FDA-Public Use
  Company Number: 2005UW07499

PATIENT
  Age: 60 Year
  Sex: Female
  Weight: 48.4 kg

DRUGS (5)
  1. ARIMIDEX [Suspect]
     Indication: BREAST CANCER
     Route: 048
     Dates: start: 20050309, end: 20050405
  2. ARIMIDEX [Suspect]
     Route: 048
     Dates: start: 20050420
  3. DOCUSATE SODIUM [Concomitant]
  4. SENNA FRUIT [Concomitant]
  5. LEVOTHYROXINE [Concomitant]

REACTIONS (2)
  - DEPRESSION [None]
  - DISTURBANCE IN ATTENTION [None]
